FAERS Safety Report 16354297 (Version 1)
Quarter: 2019Q2

REPORT INFORMATION
  Report Type: Spontaneous
  Country: US (occurrence: US)
  Receive Date: 20190524
  Receipt Date: 20190524
  Transmission Date: 20190711
  Serious: Yes (Other)
  Sender: FDA-Public Use
  Company Number: US-AKORN PHARMACEUTICALS-2019AKN00954

PATIENT
  Age: 17 Year
  Sex: Male
  Weight: 61.22 kg

DRUGS (3)
  1. MYORISAN [Suspect]
     Active Substance: ISOTRETINOIN
     Dosage: 40 MG, 2X/DAY
     Route: 048
     Dates: start: 201903, end: 20190408
  2. MYORISAN [Suspect]
     Active Substance: ISOTRETINOIN
     Indication: ACNE
     Dosage: 40 MG, 1X/DAY
     Route: 048
     Dates: start: 20190109, end: 201902
  3. MYORISAN [Suspect]
     Active Substance: ISOTRETINOIN
     Indication: ACNE
     Dosage: 30 MG, 2X/DAY
     Route: 048
     Dates: start: 201902, end: 201903

REACTIONS (12)
  - Rectal haemorrhage [Recovered/Resolved]
  - Chapped lips [Recovering/Resolving]
  - Visual impairment [Not Recovered/Not Resolved]
  - Off label use [Recovered/Resolved]
  - Dry eye [Recovering/Resolving]
  - Anxiety [Recovering/Resolving]
  - Stress [Recovering/Resolving]
  - Nasal dryness [Recovering/Resolving]
  - Epistaxis [Recovering/Resolving]
  - Hordeolum [Not Recovered/Not Resolved]
  - Xerosis [Recovering/Resolving]
  - Cheilitis [Unknown]

NARRATIVE: CASE EVENT DATE: 2019
